FAERS Safety Report 22004779 (Version 1)
Quarter: 2023Q1

REPORT INFORMATION
  Report Type: Spontaneous
  Country: MX (occurrence: MX)
  Receive Date: 20230217
  Receipt Date: 20230217
  Transmission Date: 20230417
  Serious: Yes (Other)
  Sender: FDA-Public Use
  Company Number: MX-ROCHE-3283434

PATIENT
  Age: 85 Year
  Sex: Female

DRUGS (2)
  1. MIRCERA [Suspect]
     Active Substance: METHOXY POLYETHYLENE GLYCOL-EPOETIN BETA
     Indication: Anaemia
     Dosage: FIRST DOSE
     Route: 065
     Dates: start: 2020
  2. MIRCERA [Suspect]
     Active Substance: METHOXY POLYETHYLENE GLYCOL-EPOETIN BETA
     Indication: Renal disorder
     Dosage: SECOND DOSE
     Route: 065
     Dates: start: 2020

REACTIONS (6)
  - Spinal cord disorder [Unknown]
  - Renal disorder [Unknown]
  - Lung disorder [Unknown]
  - Multi-organ disorder [Unknown]
  - COVID-19 [Unknown]
  - Haemoglobin increased [Unknown]
